FAERS Safety Report 8861577 (Version 1)
Quarter: 2012Q4

REPORT INFORMATION
  Report Type: Spontaneous
  Country: US (occurrence: None)
  Receive Date: 20121025
  Receipt Date: 20121025
  Transmission Date: 20130627
  Serious: Yes (Hospitalization, Other)
  Sender: FDA-Public Use
  Company Number: None

PATIENT
  Age: 81 Year
  Sex: Female

DRUGS (1)
  1. LEVAQUIN [Suspect]
     Dosage: 250 mg PO daily
     Route: 048
     Dates: start: 20120510, end: 20120513

REACTIONS (4)
  - Lip oedema [None]
  - Dyspnoea [None]
  - Asthenia [None]
  - Decreased appetite [None]
